FAERS Safety Report 8188862-6 (Version None)
Quarter: 2012Q1

REPORT INFORMATION
  Report Type: 
  Country: None (occurrence: None)
  Receive Date: 20120306
  Receipt Date: 20120301
  Transmission Date: 20120608
  Serious: Yes (Hospitalization)
  Sender: FDA-Public Use
  Company Number: FR-B.I. PHARMACEUTICALS,INC./RIDGEFIELD-2012-FF-00264FF

PATIENT
  Sex: Female

DRUGS (1)
  1. PRAMIPEXOLE DIHYDROCHLORIDE [Suspect]
     Indication: PARKINSON'S DISEASE
     Dosage: 1.05 MG
     Route: 048
     Dates: start: 20111218, end: 20111218

REACTIONS (4)
  - NAUSEA [None]
  - DELIRIUM [None]
  - VOMITING [None]
  - CONFUSIONAL STATE [None]
